FAERS Safety Report 22937547 (Version 4)
Quarter: 2024Q2

REPORT INFORMATION
  Report Type: Report from Study
  Country: CA (occurrence: CA)
  Receive Date: 20230913
  Receipt Date: 20240419
  Transmission Date: 20240716
  Serious: Yes (Other)
  Sender: FDA-Public Use
  Company Number: CA-002147023-NVSC2023CA051121

PATIENT
  Age: 67 Year
  Sex: Female

DRUGS (3)
  1. HYRIMOZ [Suspect]
     Active Substance: ADALIMUMAB-ADAZ
     Indication: Colitis ulcerative
     Dosage: 40 MG, QW
     Route: 058
     Dates: start: 20220405
  2. HYRIMOZ [Suspect]
     Active Substance: ADALIMUMAB-ADAZ
     Indication: Rheumatoid arthritis
     Dosage: 40 MG, QW
     Route: 058
  3. HYRIMOZ [Suspect]
     Active Substance: ADALIMUMAB-ADAZ
     Indication: Crohn^s disease
     Dosage: UNK
     Route: 065

REACTIONS (9)
  - Deafness [Recovered/Resolved]
  - Colitis ulcerative [Recovered/Resolved]
  - Speech disorder [Recovered/Resolved]
  - Sinus congestion [Recovered/Resolved]
  - Laryngitis [Recovered/Resolved]
  - Cough [Recovered/Resolved]
  - Therapeutic product effect decreased [Recovered/Resolved]
  - Diarrhoea [Recovered/Resolved]
  - Off label use [Recovered/Resolved]

NARRATIVE: CASE EVENT DATE: 20221201
